FAERS Safety Report 8883760 (Version 1)
Quarter: 2012Q4

REPORT INFORMATION
  Report Type: 
  Country: NL (occurrence: NL)
  Receive Date: 20121102
  Receipt Date: 20121102
  Transmission Date: 20130627
  Serious: Yes (Hospitalization)
  Sender: FDA-Public Use
  Company Number: NL-ELI_LILLY_AND_COMPANY-NL201210006498

PATIENT
  Age: 81 Year
  Sex: Female
  Weight: 45 kg

DRUGS (10)
  1. FORSTEO [Suspect]
     Indication: OSTEOPOROSIS
     Dosage: 20 ug, qd
     Route: 058
     Dates: start: 20110831, end: 20120930
  2. ACETYLSALICYLZUUR [Concomitant]
     Indication: ANTICOAGULANT THERAPY
     Dosage: 80 mg, qd
     Route: 048
     Dates: start: 2009
  3. LISINOPRIL [Concomitant]
     Indication: HYPERTENSION
     Dosage: 20 mg, qd
     Route: 048
     Dates: start: 20110211
  4. NEBIVOLOL [Concomitant]
     Indication: HYPERTENSION
     Dosage: 5 mg, qd
     Route: 048
     Dates: start: 201110
  5. NIFEDIPINE [Concomitant]
     Indication: HYPERTENSION
     Dosage: 30 mg, qd
     Route: 048
  6. OMEPRAZOL [Concomitant]
     Indication: GASTRIC DISORDER
     Dosage: 20 mg, qd
     Route: 048
  7. BARNIDIPINE [Concomitant]
     Indication: HYPERTENSION
     Dosage: 10 mg, UNK
     Route: 048
  8. BISOPROLOL [Concomitant]
     Indication: HYPERTENSION
     Dosage: 2.5 mg, qd
     Route: 048
     Dates: end: 20111115
  9. HYDROCHLOROTHIAZIDE [Concomitant]
     Indication: HYPERTENSION
     Dosage: 12.5 mg, qd
     Route: 048
     Dates: end: 20110930
  10. LISINOPRIL [Concomitant]
     Indication: HYPERTENSION
     Dosage: 5 mg, bid
     Route: 048
     Dates: end: 20121101

REACTIONS (3)
  - Cerebral infarction [Not Recovered/Not Resolved]
  - Headache [Unknown]
  - Visual acuity reduced [Unknown]
